FAERS Safety Report 8732114 (Version 2)
Quarter: 2012Q4

REPORT INFORMATION
  Report Type: 
  Country: US (occurrence: US)
  Receive Date: 20120820
  Receipt Date: 20120912
  Transmission Date: 20130627
  Serious: Yes (Disabling)
  Sender: FDA-Public Use
  Company Number: US-PFIZER INC-2012197638

PATIENT
  Age: 48 Year
  Sex: Female
  Weight: 70.3 kg

DRUGS (6)
  1. LYRICA [Suspect]
     Indication: FIBROMYALGIA
     Dosage: 75 mg, 3x/day
  2. LYRICA [Suspect]
     Dosage: 75 mg, 2x/day
  3. SAVELLA [Suspect]
     Indication: FIBROMYALGIA
     Dosage: 25 mg, 2x/day
  4. SAVELLA [Suspect]
     Dosage: 12.5 mg, 2x/day
  5. TOPROL XL [Concomitant]
     Indication: SUPRAVENTRICULAR TACHYCARDIA
     Dosage: 100 mg, daily
  6. ESTRADIOL [Concomitant]
     Indication: HYSTERECTOMY
     Dosage: 1 mg, daily

REACTIONS (3)
  - Accident [Unknown]
  - Palpitations [Unknown]
  - Neck pain [Unknown]
